FAERS Safety Report 26025395 (Version 1)
Quarter: 2025Q4

REPORT INFORMATION
  Report Type: Spontaneous
  Country: RU (occurrence: RU)
  Receive Date: 20251111
  Receipt Date: 20251111
  Transmission Date: 20260118
  Serious: Yes (Other)
  Sender: AMGEN
  Company Number: RU-AMGEN-RUSSP2025221017

PATIENT
  Age: 7 Year
  Sex: Male

DRUGS (7)
  1. ETANERCEPT [Suspect]
     Active Substance: ETANERCEPT
     Indication: Acute graft versus host disease
     Dosage: UNK
     Route: 065
  2. ETANERCEPT [Suspect]
     Active Substance: ETANERCEPT
     Indication: Off label use
  3. METHYLPREDNISOLONE [Concomitant]
     Active Substance: METHYLPREDNISOLONE
     Indication: Acute graft versus host disease
  4. RUXOLITINIB [Concomitant]
     Active Substance: RUXOLITINIB
     Indication: Acute graft versus host disease
  5. MESALAMINE [Concomitant]
     Active Substance: MESALAMINE
     Indication: Acute graft versus host disease
  6. ABATACEPT [Concomitant]
     Active Substance: ABATACEPT
     Indication: Acute graft versus host disease
  7. ADALIMUMAB [Concomitant]
     Active Substance: ADALIMUMAB
     Indication: Acute graft versus host disease

REACTIONS (2)
  - Acute graft versus host disease [Unknown]
  - Off label use [Unknown]
